FAERS Safety Report 19683911 (Version 7)
Quarter: 2022Q4

REPORT INFORMATION
  Report Type: Spontaneous
  Country: FR (occurrence: FR)
  Receive Date: 20210811
  Receipt Date: 20221221
  Transmission Date: 20230113
  Serious: Yes (Hospitalization, Disabling, Other)
  Sender: FDA-Public Use
  Company Number: FR-THERAMEX-2021000843

PATIENT
  Age: 37 Year
  Sex: Female
  Weight: 61 kg

DRUGS (142)
  1. KEPPRA [Suspect]
     Active Substance: LEVETIRACETAM
     Indication: Product used for unknown indication
     Dosage: 500MG
  2. DIANE (CYPROTERONE ACETATE\ETHINYL ESTRADIOL) [Suspect]
     Active Substance: CYPROTERONE ACETATE\ETHINYL ESTRADIOL
     Indication: Haemorrhage
     Dosage: 35MG
     Dates: start: 1999, end: 2001
  3. DIANE (CYPROTERONE ACETATE\ETHINYL ESTRADIOL) [Suspect]
     Active Substance: CYPROTERONE ACETATE\ETHINYL ESTRADIOL
     Indication: Migraine
  4. CHLORMADINONE ACETATE [Suspect]
     Active Substance: CHLORMADINONE ACETATE
     Indication: Migraine
     Dosage: UNK
     Dates: start: 20011105, end: 200211
  5. CHLORMADINONE ACETATE [Suspect]
     Active Substance: CHLORMADINONE ACETATE
     Indication: Ovarian cyst
     Dosage: UNK
     Route: 065
     Dates: start: 2017, end: 2019
  6. CHLORMADINONE ACETATE [Suspect]
     Active Substance: CHLORMADINONE ACETATE
     Dosage: UNK
     Route: 065
     Dates: start: 20190226
  7. CHLORMADINONE ACETATE [Suspect]
     Active Substance: CHLORMADINONE ACETATE
     Dosage: 1 DOSAGE FORM, QD, 10MG DAILY, 21 DAYS/MONTH
     Route: 048
     Dates: start: 20011105, end: 200211
  8. CHLORMADINONE ACETATE [Suspect]
     Active Substance: CHLORMADINONE ACETATE
     Dosage: UNK
     Route: 065
     Dates: start: 20160226, end: 2017
  9. CHLORMADINONE ACETATE [Suspect]
     Active Substance: CHLORMADINONE ACETATE
     Dosage: UNK
     Route: 065
     Dates: start: 2019
  10. BROMAZEPAM [Suspect]
     Active Substance: BROMAZEPAM
     Indication: Product used for unknown indication
     Dosage: UNK
  11. BROMAZEPAM [Suspect]
     Active Substance: BROMAZEPAM
  12. BROMAZEPAM [Suspect]
     Active Substance: BROMAZEPAM
     Dosage: UNK
     Route: 065
  13. BROMAZEPAM [Suspect]
     Active Substance: BROMAZEPAM
     Dosage: UNK
     Route: 065
  14. BROMAZEPAM [Suspect]
     Active Substance: BROMAZEPAM
     Dosage: UNK
     Route: 065
  15. BROMAZEPAM [Suspect]
     Active Substance: BROMAZEPAM
     Dosage: UNK
     Route: 065
  16. NOMEGESTROL ACETATE [Suspect]
     Active Substance: NOMEGESTROL ACETATE
     Indication: Haemorrhage
     Dosage: UNK
     Route: 065
     Dates: start: 2002, end: 2011
  17. NOMEGESTROL ACETATE [Suspect]
     Active Substance: NOMEGESTROL ACETATE
     Indication: Migraine
     Dosage: UNK
     Route: 065
     Dates: start: 201103
  18. NOMEGESTROL ACETATE [Suspect]
     Active Substance: NOMEGESTROL ACETATE
     Indication: Intermenstrual bleeding
     Dosage: UNK (LUTENYL CONTINUOUSLY)
     Dates: start: 20080408
  19. NOMEGESTROL ACETATE [Suspect]
     Active Substance: NOMEGESTROL ACETATE
     Indication: Migraine
     Dosage: UNK (LUTENYL CONTINUOUSLY)
     Dates: start: 20061027, end: 2011
  20. NOMEGESTROL ACETATE [Suspect]
     Active Substance: NOMEGESTROL ACETATE
     Indication: Haemorrhage
     Dosage: UNK (RENEWAL LUTENYL)
     Dates: start: 20050420
  21. NOMEGESTROL ACETATE [Suspect]
     Active Substance: NOMEGESTROL ACETATE
     Indication: Contraception
     Dosage: UNK (LUTENYL CONTINUOUSLY)
     Dates: start: 20071010
  22. NOMEGESTROL ACETATE [Suspect]
     Active Substance: NOMEGESTROL ACETATE
     Indication: Ovarian cyst
     Dosage: UNK
     Dates: start: 20040330
  23. NOMEGESTROL ACETATE [Suspect]
     Active Substance: NOMEGESTROL ACETATE
     Indication: Migraine
     Dosage: UNK
     Dates: start: 20110316
  24. NOMEGESTROL ACETATE [Suspect]
     Active Substance: NOMEGESTROL ACETATE
     Indication: Oral contraception
     Dosage: UNK
     Dates: start: 201103
  25. NOMEGESTROL ACETATE [Suspect]
     Active Substance: NOMEGESTROL ACETATE
     Dosage: 1 DF, QD
     Route: 048
     Dates: start: 200111, end: 200211
  26. NOMEGESTROL ACETATE [Suspect]
     Active Substance: NOMEGESTROL ACETATE
     Dosage: UNK (LUTENYL CONTINUOUSLY)
     Dates: start: 20070503
  27. NOMEGESTROL ACETATE [Suspect]
     Active Substance: NOMEGESTROL ACETATE
     Dosage: UNK (LUTENYL CONTINUOUSLY)
     Dates: start: 20051025
  28. NOMEGESTROL ACETATE [Suspect]
     Active Substance: NOMEGESTROL ACETATE
     Dosage: 10 MG
     Route: 065
     Dates: start: 20190226
  29. NOMEGESTROL ACETATE [Suspect]
     Active Substance: NOMEGESTROL ACETATE
     Dosage: UNK (RENEWAL LUTENYL)
     Dates: start: 20080429
  30. NOMEGESTROL ACETATE [Suspect]
     Active Substance: NOMEGESTROL ACETATE
     Dosage: 10 MG
     Route: 065
     Dates: start: 20011105, end: 2002
  31. NOMEGESTROL ACETATE [Suspect]
     Active Substance: NOMEGESTROL ACETATE
     Dosage: UNK
     Route: 065
     Dates: start: 20031112, end: 2011
  32. NOMEGESTROL ACETATE [Suspect]
     Active Substance: NOMEGESTROL ACETATE
     Dosage: UNK
     Route: 065
     Dates: start: 200211, end: 200403
  33. NOMEGESTROL ACETATE [Suspect]
     Active Substance: NOMEGESTROL ACETATE
     Dosage: UNK (LUTENYL CONTINUOUSLY)
     Dates: start: 20091116
  34. NOMEGESTROL ACETATE [Suspect]
     Active Substance: NOMEGESTROL ACETATE
     Dosage: UNK
     Route: 065
     Dates: start: 20030430
  35. NOMEGESTROL ACETATE [Suspect]
     Active Substance: NOMEGESTROL ACETATE
     Dosage: UNK (LUTENYL CONTINUOUSLY)
     Dates: start: 20040923
  36. NOMEGESTROL ACETATE [Suspect]
     Active Substance: NOMEGESTROL ACETATE
     Dosage: 10 MG
     Route: 065
     Dates: start: 20020404
  37. NOMEGESTROL ACETATE [Suspect]
     Active Substance: NOMEGESTROL ACETATE
     Dosage: 1 DF, DAILY
     Route: 048
     Dates: start: 20021113, end: 201103
  38. NOMEGESTROL ACETATE [Suspect]
     Active Substance: NOMEGESTROL ACETATE
     Dosage: UNK (LUTENYL CONTINUOUSLY)
     Dates: start: 20100206
  39. NOMEGESTROL [Suspect]
     Active Substance: NOMEGESTROL
     Indication: Product used for unknown indication
     Dosage: UNK
  40. SINGULAIR [Suspect]
     Active Substance: MONTELUKAST SODIUM
     Indication: Product used for unknown indication
     Dosage: UNK
  41. SINGULAIR [Suspect]
     Active Substance: MONTELUKAST SODIUM
  42. SINGULAIR [Suspect]
     Active Substance: MONTELUKAST SODIUM
     Dosage: UNK
     Route: 065
  43. SINGULAIR [Suspect]
     Active Substance: MONTELUKAST SODIUM
     Dosage: UNK
     Route: 065
     Dates: start: 20110516
  44. ESCITALOPRAM OXALATE [Suspect]
     Active Substance: ESCITALOPRAM OXALATE
     Indication: Product used for unknown indication
     Dosage: 15MG
  45. ESCITALOPRAM OXALATE [Suspect]
     Active Substance: ESCITALOPRAM OXALATE
     Dosage: 15 MG
     Route: 065
  46. ESCITALOPRAM OXALATE [Suspect]
     Active Substance: ESCITALOPRAM OXALATE
     Dosage: UNK
     Route: 065
  47. ESCITALOPRAM OXALATE [Suspect]
     Active Substance: ESCITALOPRAM OXALATE
     Dosage: 15 MG
     Route: 065
  48. ESCITALOPRAM OXALATE [Suspect]
     Active Substance: ESCITALOPRAM OXALATE
     Dosage: UNK
     Route: 065
  49. ESCITALOPRAM OXALATE [Suspect]
     Active Substance: ESCITALOPRAM OXALATE
     Dosage: 15 MILLIGRAM
     Route: 065
  50. ALMOTRIPTAN MALATE [Suspect]
     Active Substance: ALMOTRIPTAN MALATE
     Indication: Headache
     Dosage: UNK
  51. ALMOTRIPTAN MALATE [Suspect]
     Active Substance: ALMOTRIPTAN MALATE
  52. ALMOTRIPTAN MALATE [Suspect]
     Active Substance: ALMOTRIPTAN MALATE
     Dosage: UNK
     Route: 065
  53. ALMOTRIPTAN MALATE [Suspect]
     Active Substance: ALMOTRIPTAN MALATE
     Dosage: UNK
     Route: 065
  54. ALMOTRIPTAN MALATE [Suspect]
     Active Substance: ALMOTRIPTAN MALATE
     Dosage: UNK
     Route: 065
  55. ALMOTRIPTAN MALATE [Suspect]
     Active Substance: ALMOTRIPTAN MALATE
     Dosage: UNK
     Route: 065
  56. VENLAFAXINE HYDROCHLORIDE [Suspect]
     Active Substance: VENLAFAXINE HYDROCHLORIDE
     Indication: Headache
     Dosage: UNK
  57. ALBUTEROL SULFATE [Suspect]
     Active Substance: ALBUTEROL SULFATE
     Indication: Asthma
     Dosage: UNK
  58. ALBUTEROL SULFATE [Suspect]
     Active Substance: ALBUTEROL SULFATE
     Dosage: UNK
     Route: 065
  59. ALBUTEROL SULFATE [Suspect]
     Active Substance: ALBUTEROL SULFATE
     Dosage: UNK
     Route: 065
  60. MEDROL [Suspect]
     Active Substance: METHYLPREDNISOLONE
     Indication: Product used for unknown indication
     Dosage: 4MG
  61. INDOMETHACIN [Suspect]
     Active Substance: INDOMETHACIN
     Indication: Headache
     Dosage: UNK
  62. INDOMETHACIN [Suspect]
     Active Substance: INDOMETHACIN
     Dosage: UNK
     Route: 065
  63. INDOMETHACIN [Suspect]
     Active Substance: INDOMETHACIN
     Dosage: UNK
     Route: 065
  64. INDOMETHACIN [Suspect]
     Active Substance: INDOMETHACIN
     Dosage: UNK
     Route: 065
  65. CYPROTERONE ACETATE [Suspect]
     Active Substance: CYPROTERONE ACETATE
     Indication: Hirsutism
     Dosage: 1G
     Dates: start: 20110506, end: 201506
  66. CYPROTERONE ACETATE [Suspect]
     Active Substance: CYPROTERONE ACETATE
     Indication: Hypertrichosis
     Dosage: 1G, UNK
     Dates: start: 20150617
  67. CYPROTERONE ACETATE [Suspect]
     Active Substance: CYPROTERONE ACETATE
     Indication: Oral contraception
     Dosage: 1G, UNK
     Dates: start: 201105, end: 201506
  68. CYPROTERONE ACETATE [Suspect]
     Active Substance: CYPROTERONE ACETATE
     Indication: Hirsutism
     Dosage: 500MG
     Dates: start: 201505
  69. CYPROTERONE ACETATE [Suspect]
     Active Substance: CYPROTERONE ACETATE
     Dosage: 1 G
     Dates: start: 20150617
  70. CYPROTERONE ACETATE [Suspect]
     Active Substance: CYPROTERONE ACETATE
     Dosage: 50 MG, DAILY
     Route: 048
     Dates: start: 201105, end: 201506
  71. CYPROTERONE ACETATE [Suspect]
     Active Substance: CYPROTERONE ACETATE
     Dosage: UNK
     Dates: start: 20131127
  72. CYPROTERONE ACETATE [Suspect]
     Active Substance: CYPROTERONE ACETATE
     Dosage: UNK
     Dates: start: 20150717
  73. CYPROTERONE ACETATE [Suspect]
     Active Substance: CYPROTERONE ACETATE
     Dosage: UNK
     Dates: start: 20170323
  74. CYPROTERONE ACETATE [Suspect]
     Active Substance: CYPROTERONE ACETATE
     Dosage: UNK
     Dates: start: 20111107
  75. CYPROTERONE ACETATE [Suspect]
     Active Substance: CYPROTERONE ACETATE
     Dosage: UNK
     Dates: start: 20130514
  76. CYPROTERONE ACETATE [Suspect]
     Active Substance: CYPROTERONE ACETATE
     Dosage: 500 MG
     Dates: start: 201505
  77. CYPROTERONE ACETATE [Suspect]
     Active Substance: CYPROTERONE ACETATE
     Dosage: UNK
     Dates: start: 20150115
  78. CYPROTERONE ACETATE [Suspect]
     Active Substance: CYPROTERONE ACETATE
     Dosage: UNK (DR. SAW THE PATIENT ON JULY 17, 2015,)
     Route: 065
     Dates: start: 20170717
  79. CYPROTERONE ACETATE [Suspect]
     Active Substance: CYPROTERONE ACETATE
     Dosage: 1 G, 1X/DAY
     Route: 048
     Dates: start: 20110506, end: 201506
  80. CYPROTERONE ACETATE [Suspect]
     Active Substance: CYPROTERONE ACETATE
     Dosage: UNK
     Dates: start: 20120406
  81. CYPROTERONE ACETATE [Suspect]
     Active Substance: CYPROTERONE ACETATE
     Dosage: UNK
     Dates: start: 20121113
  82. AMITRIPTYLINE HYDROCHLORIDE [Suspect]
     Active Substance: AMITRIPTYLINE HYDROCHLORIDE
     Indication: Headache
     Dosage: UNK
  83. AMITRIPTYLINE HYDROCHLORIDE [Suspect]
     Active Substance: AMITRIPTYLINE HYDROCHLORIDE
  84. AMITRIPTYLINE HYDROCHLORIDE [Suspect]
     Active Substance: AMITRIPTYLINE HYDROCHLORIDE
     Dosage: UNK
     Route: 065
  85. AMITRIPTYLINE HYDROCHLORIDE [Suspect]
     Active Substance: AMITRIPTYLINE HYDROCHLORIDE
     Dosage: UNK
     Route: 065
  86. AMITRIPTYLINE HYDROCHLORIDE [Suspect]
     Active Substance: AMITRIPTYLINE HYDROCHLORIDE
     Dosage: UNK
     Route: 065
  87. AMITRIPTYLINE HYDROCHLORIDE [Suspect]
     Active Substance: AMITRIPTYLINE HYDROCHLORIDE
     Dosage: UNK
     Route: 065
  88. OXETORONE [Suspect]
     Active Substance: OXETORONE
     Indication: Headache
     Dosage: UNK
  89. OXETORONE [Suspect]
     Active Substance: OXETORONE
  90. OXETORONE [Suspect]
     Active Substance: OXETORONE
     Dosage: UNK
     Route: 065
  91. OXETORONE [Suspect]
     Active Substance: OXETORONE
     Dosage: UNK
     Route: 065
  92. OXETORONE [Suspect]
     Active Substance: OXETORONE
     Dosage: UNK
     Route: 065
  93. OXETORONE [Suspect]
     Active Substance: OXETORONE
     Dosage: UNK
     Route: 065
  94. OXETORONE [Suspect]
     Active Substance: OXETORONE
     Dosage: UNK
     Route: 065
  95. OXETORONE [Suspect]
     Active Substance: OXETORONE
     Dosage: UNK
     Route: 065
  96. ASPIRIN LYSINE\METOCLOPRAMIDE HYDROCHLORIDE [Suspect]
     Active Substance: ASPIRIN LYSINE\METOCLOPRAMIDE HYDROCHLORIDE
     Indication: Headache
     Dosage: UNK
  97. ASPIRIN LYSINE\METOCLOPRAMIDE HYDROCHLORIDE [Suspect]
     Active Substance: ASPIRIN LYSINE\METOCLOPRAMIDE HYDROCHLORIDE
  98. ASPIRIN LYSINE\METOCLOPRAMIDE HYDROCHLORIDE [Suspect]
     Active Substance: ASPIRIN LYSINE\METOCLOPRAMIDE HYDROCHLORIDE
     Dosage: UNK
     Route: 065
  99. ASPIRIN LYSINE\METOCLOPRAMIDE HYDROCHLORIDE [Suspect]
     Active Substance: ASPIRIN LYSINE\METOCLOPRAMIDE HYDROCHLORIDE
     Dosage: UNK
     Route: 065
  100. ALBUTEROL [Suspect]
     Active Substance: ALBUTEROL
     Indication: Asthma
  101. ALBUTEROL [Suspect]
     Active Substance: ALBUTEROL
     Dosage: UNK
     Route: 065
  102. PROPRANOLOL HYDROCHLORIDE [Suspect]
     Active Substance: PROPRANOLOL HYDROCHLORIDE
     Indication: Headache
     Dosage: UNK
     Dates: start: 199703
  103. PROPRANOLOL HYDROCHLORIDE [Suspect]
     Active Substance: PROPRANOLOL HYDROCHLORIDE
     Dosage: UNK
     Dates: start: 20001128
  104. PROPRANOLOL HYDROCHLORIDE [Suspect]
     Active Substance: PROPRANOLOL HYDROCHLORIDE
     Dosage: 1.5 DF
     Route: 065
     Dates: start: 20001128
  105. ESTRADIOL [Concomitant]
     Active Substance: ESTRADIOL
     Indication: Hair growth abnormal
  106. ESTRADIOL [Concomitant]
     Active Substance: ESTRADIOL
     Indication: Dysmenorrhoea
     Dosage: 1 GEL PRESSURE
     Route: 065
     Dates: start: 20130514
  107. ESTRADIOL [Concomitant]
     Active Substance: ESTRADIOL
     Indication: Hair growth abnormal
     Dosage: 2 DOSAGE FORM (GEL 2 P)
     Route: 065
     Dates: start: 20150617
  108. ESTRADIOL [Concomitant]
     Active Substance: ESTRADIOL
     Indication: Hair disorder
     Dosage: UNK
     Route: 065
  109. ESTRADIOL [Concomitant]
     Active Substance: ESTRADIOL
     Dosage: 1 DOSAGE FORM, 1 GEL PRESSURE
     Route: 065
     Dates: start: 20131127
  110. ESTRADIOL [Concomitant]
     Active Substance: ESTRADIOL
     Dosage: UNK
     Route: 065
  111. ESTRADIOL [Concomitant]
     Active Substance: ESTRADIOL
     Dosage: UNK
     Route: 065
  112. PAROXETINE HYDROCHLORIDE [Concomitant]
     Active Substance: PAROXETINE HYDROCHLORIDE
     Indication: Product used for unknown indication
  113. PAROXETINE HYDROCHLORIDE [Concomitant]
     Active Substance: PAROXETINE HYDROCHLORIDE
     Dosage: UNK
     Route: 065
     Dates: start: 20051025
  114. VENTOLIN [Concomitant]
     Active Substance: ALBUTEROL SULFATE
     Indication: Asthma
  115. TIANEPTINE [Concomitant]
     Active Substance: TIANEPTINE
     Indication: Headache
  116. TIANEPTINE [Concomitant]
     Active Substance: TIANEPTINE
     Dosage: 2 DOSAGE FORM
     Route: 048
     Dates: start: 20100608
  117. TIANEPTINE [Concomitant]
     Active Substance: TIANEPTINE
     Dosage: 1 DOSAGE FORM, QD (1 TABLET PER DAY)
     Route: 048
     Dates: start: 20061027
  118. MEDROL [Concomitant]
     Active Substance: METHYLPREDNISOLONE
     Indication: Headache
  119. SIBELIUM [FLUNARIZINE DIHYDROCHLORIDE;NICERGOLINE] [Concomitant]
     Indication: Product used for unknown indication
  120. PULMICORT TURBUHALER [Concomitant]
     Active Substance: BUDESONIDE
     Indication: Headache
  121. PULMICORT TURBUHALER [Concomitant]
     Active Substance: BUDESONIDE
     Dosage: UNK
     Route: 065
     Dates: start: 20110516
  122. TOPIRAMATE [Concomitant]
     Active Substance: TOPIRAMATE
     Indication: Headache
  123. TOPIRAMATE [Concomitant]
     Active Substance: TOPIRAMATE
     Dosage: UNK
     Route: 065
     Dates: start: 20110516
  124. TOPIRAMATE [Concomitant]
     Active Substance: TOPIRAMATE
     Dosage: UNK
     Route: 065
     Dates: start: 20100608
  125. PROMESTRIENE [Concomitant]
     Active Substance: PROMESTRIENE
     Indication: Headache
  126. PROMESTRIENE [Concomitant]
     Active Substance: PROMESTRIENE
     Dosage: 1 DOSAGE FORM
     Route: 067
     Dates: start: 20090429
  127. PROMESTRIENE [Concomitant]
     Active Substance: PROMESTRIENE
     Dosage: 1 DOSAGE FORM
     Route: 067
     Dates: start: 20091116
  128. KETOPROFEN [Concomitant]
     Active Substance: KETOPROFEN
     Indication: Product used for unknown indication
  129. KETOPROFEN [Concomitant]
     Active Substance: KETOPROFEN
     Dosage: 2 DOSAGE FORM, QD (2 CAPSULES PER DAY)
     Route: 065
     Dates: start: 20050420
  130. DOLIPRANE [Concomitant]
     Active Substance: ACETAMINOPHEN
     Indication: Migraine
  131. DOLIPRANE [Concomitant]
     Active Substance: ACETAMINOPHEN
     Dosage: UNK
     Route: 065
  132. PRAZEPAM [Concomitant]
     Active Substance: PRAZEPAM
     Indication: Headache
  133. PRAZEPAM [Concomitant]
     Active Substance: PRAZEPAM
     Dosage: TREATMENT WITH DEROXAT LYSANXIA LUTENYL
     Route: 065
     Dates: start: 20051025
  134. PRAZEPAM [Concomitant]
     Active Substance: PRAZEPAM
     Dosage: 1.5 DF, QD TREATMENT WITH DEROXAT LYSANXIA LUTENYL
     Route: 065
     Dates: start: 20090429
  135. PRAZEPAM [Concomitant]
     Active Substance: PRAZEPAM
     Dosage: TREATMENT WITH DEROXAT AND LYSANXIA. LUTENYL
     Route: 065
     Dates: start: 20060502
  136. PRAZEPAM [Concomitant]
     Active Substance: PRAZEPAM
     Dosage: 0.5 DOSAGE FORM (1/2 TABLET)
     Route: 065
     Dates: start: 20060502
  137. DIHYDROERGOTAMINE MESYLATE [Concomitant]
     Active Substance: DIHYDROERGOTAMINE MESYLATE
     Indication: Product used for unknown indication
  138. DIHYDROERGOTAMINE MESYLATE [Concomitant]
     Active Substance: DIHYDROERGOTAMINE MESYLATE
     Dosage: COMMENT WHEN LUTENYL WAS RENEWED
     Route: 065
     Dates: start: 20050420
  139. FLUNARIZINE HYDROCHLORIDE [Concomitant]
     Active Substance: FLUNARIZINE HYDROCHLORIDE
     Indication: Product used for unknown indication
     Dosage: UNK
     Route: 065
  140. CYPROTERONE [Concomitant]
     Active Substance: CYPROTERONE
     Indication: Product used for unknown indication
     Dosage: UNK
  141. BROMAZEPAM [Concomitant]
     Active Substance: BROMAZEPAM
     Indication: Product used for unknown indication
     Dosage: UNK
     Route: 065
  142. CHLORMADINONE [Concomitant]
     Active Substance: CHLORMADINONE
     Indication: Product used for unknown indication
     Dosage: UNK
     Route: 065

REACTIONS (103)
  - Disability [Unknown]
  - Eye pain [Not Recovered/Not Resolved]
  - Eyelid ptosis [Not Recovered/Not Resolved]
  - Meningioma [Not Recovered/Not Resolved]
  - Exophthalmos [Recovered/Resolved]
  - Headache [Not Recovered/Not Resolved]
  - Condition aggravated [Recovered/Resolved]
  - Paraesthesia [Not Recovered/Not Resolved]
  - Mydriasis [Not Recovered/Not Resolved]
  - Amnesia [Not Recovered/Not Resolved]
  - Ligament sprain [Unknown]
  - Nausea [Unknown]
  - Somnolence [Not Recovered/Not Resolved]
  - Asthenia [Unknown]
  - Coordination abnormal [Not Recovered/Not Resolved]
  - Dizziness [Not Recovered/Not Resolved]
  - Hypoaesthesia eye [Recovered/Resolved]
  - Heterophoria [Recovered/Resolved]
  - Anisocoria [Not Recovered/Not Resolved]
  - Impaired quality of life [Recovered/Resolved]
  - Pain [Unknown]
  - Visual impairment [Not Recovered/Not Resolved]
  - Hypocalcaemia [Not Recovered/Not Resolved]
  - Gait disturbance [Not Recovered/Not Resolved]
  - Diplopia [Unknown]
  - Photophobia [Not Recovered/Not Resolved]
  - Epilepsy [Not Recovered/Not Resolved]
  - Neck pain [Not Recovered/Not Resolved]
  - Depression [Not Recovered/Not Resolved]
  - Back pain [Not Recovered/Not Resolved]
  - Asthenopia [Not Recovered/Not Resolved]
  - Eye injury [Not Recovered/Not Resolved]
  - Malaise [Not Recovered/Not Resolved]
  - Blindness [Not Recovered/Not Resolved]
  - Migraine with aura [Not Recovered/Not Resolved]
  - Fatigue [Not Recovered/Not Resolved]
  - Hypertrichosis [Unknown]
  - General physical health deterioration [Not Recovered/Not Resolved]
  - Hot flush [Not Recovered/Not Resolved]
  - Movement disorder [Unknown]
  - Upper limb fracture [Unknown]
  - Muscle twitching [Unknown]
  - Amenorrhoea [Unknown]
  - Nervous system disorder [Recovering/Resolving]
  - Communication disorder [Not Recovered/Not Resolved]
  - Night sweats [Unknown]
  - Tremor [Not Recovered/Not Resolved]
  - Retrograde amnesia [Not Recovered/Not Resolved]
  - Cognitive disorder [Not Recovered/Not Resolved]
  - Intermenstrual bleeding [Not Recovered/Not Resolved]
  - Fall [Not Recovered/Not Resolved]
  - Balance disorder [Not Recovered/Not Resolved]
  - Tenderness [Not Recovered/Not Resolved]
  - Crying [Unknown]
  - Vertigo [Not Recovered/Not Resolved]
  - Phonophobia [Unknown]
  - Eye movement disorder [Not Recovered/Not Resolved]
  - Migraine without aura [Not Recovered/Not Resolved]
  - Occipital neuralgia [Not Recovered/Not Resolved]
  - Menometrorrhagia [Unknown]
  - Blepharospasm [Unknown]
  - Weight increased [Unknown]
  - Impaired work ability [Recovered/Resolved]
  - Visual field defect [Not Recovered/Not Resolved]
  - Discomfort [Not Recovered/Not Resolved]
  - Cluster headache [Not Recovered/Not Resolved]
  - Menopausal symptoms [Unknown]
  - Hyperhidrosis [Unknown]
  - Clumsiness [Not Recovered/Not Resolved]
  - Fibroadenoma of breast [Unknown]
  - Apathy [Not Recovered/Not Resolved]
  - Ill-defined disorder [Unknown]
  - Withdrawal syndrome [Unknown]
  - Tachycardia [Unknown]
  - Sleep disorder [Not Recovered/Not Resolved]
  - Myopia [Unknown]
  - Vulvovaginal dryness [Unknown]
  - Migraine [Unknown]
  - Ovarian cyst [Unknown]
  - Urinary incontinence [Unknown]
  - Vision blurred [Unknown]
  - Heavy menstrual bleeding [Recovered/Resolved]
  - Limb discomfort [Unknown]
  - Arthralgia [Unknown]
  - Radius fracture [Unknown]
  - Night sweats [Unknown]
  - Visual impairment [Unknown]
  - Migraine [Unknown]
  - Diplopia [Not Recovered/Not Resolved]
  - Gait disturbance [Unknown]
  - Dyscalculia [Unknown]
  - Amnesia [Not Recovered/Not Resolved]
  - Headache [Unknown]
  - Condition aggravated [Recovered/Resolved]
  - Hyperaesthesia [Unknown]
  - Facial pain [Unknown]
  - Off label use [Unknown]
  - Hypertrichosis [Unknown]
  - Asthenia [Not Recovered/Not Resolved]
  - General physical condition abnormal [Not Recovered/Not Resolved]
  - Anisocoria [Not Recovered/Not Resolved]
  - Hyperhidrosis [Unknown]
  - Arthralgia [Unknown]

NARRATIVE: CASE EVENT DATE: 20001101
